FAERS Safety Report 8312625-1 (Version None)
Quarter: 2012Q2

REPORT INFORMATION
  Report Type: 
  Country: None (occurrence: None)
  Receive Date: 20120424
  Receipt Date: 20120418
  Transmission Date: 20120825
  Serious: Yes (Hospitalization, Other)
  Sender: FDA-Public Use
  Company Number: 2012SP009363

PATIENT
  Sex: Female

DRUGS (3)
  1. RIBAVIRIN [Suspect]
     Indication: HEPATITIS C
     Dates: start: 20111125
  2. PEG-INTRON [Suspect]
     Indication: HEPATITIS C
     Dates: start: 20111125
  3. VICTRELIS [Suspect]
     Indication: HEPATITIS C
     Dates: start: 20111224

REACTIONS (11)
  - GAIT DISTURBANCE [None]
  - MALAISE [None]
  - NASOPHARYNGITIS [None]
  - LOSS OF CONSCIOUSNESS [None]
  - FULL BLOOD COUNT DECREASED [None]
  - FALL [None]
  - BLOOD SODIUM DECREASED [None]
  - FATIGUE [None]
  - INSOMNIA [None]
  - ASTHENIA [None]
  - THINKING ABNORMAL [None]
